FAERS Safety Report 4329927-6 (Version None)
Quarter: 2004Q1

REPORT INFORMATION
  Report Type: 
  Country: None (occurrence: None)
  Receive Date: 20040329
  Receipt Date: 20040315
  Transmission Date: 20041129
  Serious: Yes (Life-Threatening, Hospitalization)
  Sender: FDA-Public Use
  Company Number: OMPQ-NO-0403S-0202

PATIENT
  Age: 83 Year
  Sex: Male

DRUGS (1)
  1. OMNIPAQUE 70 [Suspect]
     Indication: GASTRIC CANCER
     Dosage: 80 ML, SINGLE DOSE, I.V.
     Route: 042
     Dates: start: 20040308, end: 20040308

REACTIONS (3)
  - DELIRIUM [None]
  - LOSS OF CONSCIOUSNESS [None]
  - RESPIRATORY ARREST [None]
